FAERS Safety Report 9480148 (Version 1)
Quarter: 2013Q3

REPORT INFORMATION
  Report Type: Spontaneous
  Country: US (occurrence: US)
  Receive Date: 20130828
  Receipt Date: 20130828
  Transmission Date: 20140515
  Serious: Yes (Other)
  Sender: FDA-Public Use
  Company Number: US-AMGEN-KDL069761

PATIENT
  Age: 60 Year
  Sex: Female

DRUGS (1)
  1. ENBREL [Suspect]
     Indication: PSORIATIC ARTHROPATHY
     Dosage: 25 MG, 2 TIMES/WK
     Route: 058
     Dates: start: 20010501

REACTIONS (8)
  - Epilepsy [Unknown]
  - Dyspnoea [Unknown]
  - Gait disturbance [Unknown]
  - Feeling drunk [Unknown]
  - Tooth injury [Unknown]
  - Toothache [Unknown]
  - Mouth injury [Unknown]
  - Feeling abnormal [Unknown]
